FAERS Safety Report 4705972-3 (Version None)
Quarter: 2005Q2

REPORT INFORMATION
  Report Type: 
  Country: None (occurrence: None)
  Receive Date: 20050629
  Receipt Date: 20050616
  Transmission Date: 20051028
  Serious: Yes (Other)
  Sender: FDA-Public Use
  Company Number: 142358USA

PATIENT
  Age: 52 Year
  Sex: Female

DRUGS (1)
  1. HALOPERIDOL DECANOATE [Suspect]
     Dates: start: 20050501

REACTIONS (2)
  - INJECTION SITE CELLULITIS [None]
  - WRONG TECHNIQUE IN DRUG USAGE PROCESS [None]
